FAERS Safety Report 10748485 (Version 2)
Quarter: 2015Q2

REPORT INFORMATION
  Report Type: Spontaneous
  Country: US (occurrence: None)
  Receive Date: 20150120
  Receipt Date: 20150420
  Transmission Date: 20150821
  Serious: Yes (Other)
  Sender: FDA-Public Use
  Company Number: AEGR000975

PATIENT
  Age: 77 Year
  Sex: Female
  Weight: 53.1 kg

DRUGS (7)
  1. METOPROLOL (METOPROLOL TARTRATE) [Concomitant]
     Active Substance: METOPROLOL TARTRATE
  2. JUXTAPID [Suspect]
     Active Substance: LOMITAPIDE MESYLATE
     Indication: TYPE IIA HYPERLIPIDAEMIA
     Route: 048
     Dates: start: 20141103, end: 20141204
  3. WARFARIN (WARFARIN) [Suspect]
     Active Substance: WARFARIN
     Indication: PRODUCT USED FOR UNKNOWN INDICATION
  4. ZETIA [Concomitant]
     Active Substance: EZETIMIBE
  5. CARDIZEM (DILTIAZEM) [Concomitant]
  6. VITAMIN D3 [Concomitant]
     Active Substance: CHOLECALCIFEROL
  7. OMEPRAZOLE. [Concomitant]
     Active Substance: OMEPRAZOLE

REACTIONS (7)
  - Prothrombin time prolonged [None]
  - International normalised ratio increased [None]
  - Nausea [None]
  - Diarrhoea [None]
  - Inappropriate schedule of drug administration [None]
  - Hepatic enzyme increased [None]
  - Drug interaction [None]

NARRATIVE: CASE EVENT DATE: 20141124
